FAERS Safety Report 9015191 (Version 1)
Quarter: 2013Q1

REPORT INFORMATION
  Report Type: Spontaneous
  Country: US (occurrence: None)
  Receive Date: 20130109
  Receipt Date: 20130109
  Transmission Date: 20140127
  Serious: Yes (Death)
  Sender: FDA-Public Use
  Company Number: None

PATIENT
  Age: 58 Year
  Sex: Male
  Weight: 68.04 kg

DRUGS (20)
  1. RALTEGRAVIR [Suspect]
     Indication: HIV INFECTION
     Route: 048
     Dates: start: 20120412
  2. ATAZANAVIR [Suspect]
     Indication: HIV INFECTION
     Route: 048
     Dates: start: 20120412
  3. RESTORIL [Concomitant]
  4. MORPHINE [Concomitant]
  5. OXYCODONE [Concomitant]
  6. HYDROXIZINE [Concomitant]
  7. REGLAN [Concomitant]
  8. LYRICA [Concomitant]
  9. NAMENDA [Concomitant]
  10. PHENERGAN [Concomitant]
  11. PRO-AIR HFA [Concomitant]
  12. FOSAMAX [Concomitant]
  13. FLEXERIL [Concomitant]
  14. ZANTAC [Concomitant]
  15. FOLAPRO [Concomitant]
  16. VITAMIN B6 [Concomitant]
  17. VITAM IN B12 [Concomitant]
  18. L-CARNITINE [Concomitant]
  19. ACYCLOVIR [Concomitant]
  20. MVI [Concomitant]

REACTIONS (1)
  - Pneumonia [None]
